FAERS Safety Report 7048299-X (Version None)
Quarter: 2010Q4

REPORT INFORMATION
  Report Type: 
  Country: None (occurrence: None)
  Receive Date: 20101015
  Receipt Date: 20101005
  Transmission Date: 20110411
  Serious: Yes (Hospitalization)
  Sender: FDA-Public Use
  Company Number: DE-ABBOTT-10P-062-0664387-02

PATIENT
  Sex: Female
  Weight: 103 kg

DRUGS (16)
  1. HUMIRA [Suspect]
     Indication: HIDRADENITIS
     Route: 058
     Dates: start: 20090902, end: 20100630
  2. HUMIRA [Suspect]
     Route: 058
     Dates: start: 20100825
  3. ACTOS [Concomitant]
     Indication: INSULIN RESISTANCE
     Dates: start: 20100623
  4. ACTRAPID [Concomitant]
     Indication: DIABETES MELLITUS
     Dosage: 36 IE DAILY
     Dates: start: 20010101, end: 20100111
  5. ACTRAPID [Concomitant]
     Dosage: 32 IE DAILY
     Dates: start: 20080101, end: 20100111
  6. ACTRAPID [Concomitant]
     Dosage: 34 IE DAILY
     Dates: start: 20080101, end: 20100111
  7. APIDRA [Concomitant]
     Indication: DIABETES MELLITUS
     Dosage: VARIABLE DOSING THREE TIMES A DAY
     Dates: start: 20100111
  8. ASPIRIN [Concomitant]
     Indication: PERIPHERAL ARTERIAL OCCLUSIVE DISEASE
     Dates: start: 20040601, end: 20100801
  9. EZETIMIBE/SIMVASTATIN [Concomitant]
     Indication: HYPERLIPIDAEMIA
     Dosage: 10/40MG DAILY
     Dates: start: 20040601
  10. LEVEMIR [Concomitant]
     Indication: DIABETES MELLITUS
     Dosage: 24 IE DAILY
     Dates: start: 20080101, end: 20100111
  11. LEVEMIR [Concomitant]
     Dosage: VARIABLE DOSING TWICE A DAY
     Dates: start: 20100111
  12. MAGNESIUM TONIL [Concomitant]
     Indication: MUSCLE SPASMS
     Dates: start: 20070101
  13. NASENSPRAY AL [Concomitant]
     Indication: NASOPHARYNGITIS
     Dosage: 0.5MG/1MG FIVE TIMES
     Dates: start: 20040601
  14. NEBIVOLOL [Concomitant]
     Indication: HYPERTENSION
     Dates: start: 20040601
  15. OCTENISAN [Concomitant]
     Indication: PRODUCT USED FOR UNKNOWN INDICATION
     Dates: start: 20091030
  16. RAMIPRIL [Concomitant]
     Indication: HYPERTENSION
     Dates: start: 20040601

REACTIONS (1)
  - GOITRE [None]
